FAERS Safety Report 20590772 (Version 1)
Quarter: 2022Q1

REPORT INFORMATION
  Report Type: Report from Study
  Country: US (occurrence: US)
  Receive Date: 20220314
  Receipt Date: 20220314
  Transmission Date: 20220424
  Serious: Yes (Hospitalization, Other)
  Sender: FDA-Public Use
  Company Number: US-TEVA-2022-US-2015716

PATIENT
  Sex: Female

DRUGS (1)
  1. COPAXONE [Suspect]
     Active Substance: GLATIRAMER ACETATE

REACTIONS (11)
  - Chest pain [Unknown]
  - Shock [Unknown]
  - Pulmonary embolism [Unknown]
  - Injection site erythema [Unknown]
  - Injection site bruising [Unknown]
  - Injection site haemorrhage [Unknown]
  - Vascular injury [Unknown]
  - Wrong technique in product usage process [Unknown]
  - Injection site atrophy [Unknown]
  - Chest discomfort [Unknown]
  - Stress [Unknown]
